FAERS Safety Report 25289324 (Version 2)
Quarter: 2025Q2

REPORT INFORMATION
  Report Type: Spontaneous
  Country: JP (occurrence: JP)
  Receive Date: 20250509
  Receipt Date: 20250606
  Transmission Date: 20250717
  Serious: Yes (Other)
  Sender: BRACCO
  Company Number: JP-BAYER-2025A061265

PATIENT
  Age: 77 Year
  Sex: Male

DRUGS (7)
  1. IOPAMIRON [Suspect]
     Active Substance: IOPAMIDOL
     Indication: Computerised tomogram
     Route: 042
     Dates: start: 20250106, end: 20250106
  2. BIO-THREE [Concomitant]
     Active Substance: HERBALS
     Route: 048
  3. DUTASTERIDE [Concomitant]
     Active Substance: DUTASTERIDE
     Route: 048
  4. FAMOTIDINE [Concomitant]
     Active Substance: FAMOTIDINE
     Route: 048
  5. LOXOPROFEN [Concomitant]
     Active Substance: LOXOPROFEN
     Route: 048
  6. REBAMIPIDE [Concomitant]
     Active Substance: REBAMIPIDE
     Route: 048
  7. SILODOSIN [Concomitant]
     Active Substance: SILODOSIN
     Dosage: 8 MG, QD
     Route: 048

REACTIONS (8)
  - Loss of consciousness [Recovered/Resolved]
  - Gaze palsy [Recovered/Resolved]
  - Contrast media allergy [Recovered/Resolved]
  - Feeling abnormal [Recovered/Resolved]
  - Blood pressure decreased [Recovered/Resolved]
  - Respiratory rate increased [Recovered/Resolved]
  - Oxygen saturation decreased [Recovered/Resolved]
  - Contraindicated product administered [Unknown]

NARRATIVE: CASE EVENT DATE: 20250106
